FAERS Safety Report 8265050-6 (Version None)
Quarter: 2012Q2

REPORT INFORMATION
  Report Type: 
  Country: None (occurrence: None)
  Receive Date: 20120406
  Receipt Date: 20120402
  Transmission Date: 20120825
  Serious: Yes (Other)
  Sender: FDA-Public Use
  Company Number: GB-ROCHE-1039815

PATIENT
  Sex: Male

DRUGS (2)
  1. ALTEPLASE [Suspect]
     Indication: VASCULAR GRAFT OCCLUSION
     Route: 042
  2. HEPARIN SODIUM [Suspect]
     Indication: VASCULAR GRAFT OCCLUSION
     Route: 042

REACTIONS (2)
  - RENAL IMPAIRMENT [None]
  - HAEMATOMA [None]
